FAERS Safety Report 18128338 (Version 1)
Quarter: 2020Q3

REPORT INFORMATION
  Report Type: Report from Study
  Country: IL (occurrence: IL)
  Receive Date: 20200810
  Receipt Date: 20200810
  Transmission Date: 20201103
  Serious: Yes (Death)
  Sender: FDA-Public Use
  Company Number: NVSC2020IL219938

PATIENT
  Sex: Female

DRUGS (1)
  1. BYL719 [Suspect]
     Active Substance: ALPELISIB
     Indication: CERVIX CARCINOMA
     Dosage: 300 MG, QD
     Route: 048
     Dates: start: 20200506

REACTIONS (1)
  - Death [Fatal]
